FAERS Safety Report 10151687 (Version 2)
Quarter: 2014Q2

REPORT INFORMATION
  Report Type: Spontaneous
  Country: GB (occurrence: GB)
  Receive Date: 20140505
  Receipt Date: 20140612
  Transmission Date: 20141212
  Serious: Yes (Other)
  Sender: FDA-Public Use
  Company Number: GB-ROCHE-1391755

PATIENT
  Sex: Female
  Weight: 70.9 kg

DRUGS (5)
  1. KADCYLA [Suspect]
     Indication: BREAST CANCER METASTATIC
     Route: 042
     Dates: start: 20140408
  2. KADCYLA [Suspect]
     Route: 065
  3. PREGABALIN [Concomitant]
     Indication: ANALGESIC THERAPY
     Route: 048
  4. PREGABALIN [Concomitant]
     Indication: MYOSCLEROSIS
  5. CITALOPRAM [Concomitant]
     Indication: DEPRESSION
     Route: 048

REACTIONS (3)
  - Chest pain [Recovered/Resolved]
  - Dyspnoea [Recovered/Resolved]
  - Gait disturbance [Not Recovered/Not Resolved]
